FAERS Safety Report 24008256 (Version 1)
Quarter: 2024Q2

REPORT INFORMATION
  Report Type: Spontaneous
  Country: US (occurrence: US)
  Receive Date: 20240625
  Receipt Date: 20240625
  Transmission Date: 20240715
  Serious: No
  Sender: FDA-Public Use
  Company Number: US-ROCHE-10000003529

PATIENT
  Sex: Female

DRUGS (1)
  1. HERCEPTIN [Suspect]
     Active Substance: TRASTUZUMAB
     Indication: HER2 positive breast cancer
     Route: 065

REACTIONS (4)
  - Oral discomfort [Not Recovered/Not Resolved]
  - Oral herpes [Recovered/Resolved]
  - Muscle tightness [Not Recovered/Not Resolved]
  - Herpes simplex [Not Recovered/Not Resolved]
